FAERS Safety Report 14973700 (Version 1)
Quarter: 2018Q2

REPORT INFORMATION
  Report Type: Spontaneous
  Country: US (occurrence: US)
  Receive Date: 20180514
  Receipt Date: 20180514
  Transmission Date: 20180711
  Serious: Yes (Death)
  Sender: FDA-Public Use
  Company Number: None

PATIENT
  Age: 73 Year
  Sex: Female
  Weight: 53.98 kg

DRUGS (9)
  1. POT CL MICRO 20 MEQ [Suspect]
     Active Substance: POTASSIUM CHLORIDE
     Indication: PLASMA CELL MYELOMA
     Route: 048
     Dates: start: 20180503, end: 20180510
  2. OMEPRAZOLE. [Concomitant]
     Active Substance: OMEPRAZOLE
  3. WARFARIN [Concomitant]
     Active Substance: WARFARIN
  4. IPRATROPIUM [Concomitant]
     Active Substance: IPRATROPIUM
  5. ENSURE [Concomitant]
     Active Substance: AMINO ACIDS\DEXTROSE\ELECTROLYTES NOS\SOYBEAN OIL\VITAMINS
  6. LIDOCAINE. [Concomitant]
     Active Substance: LIDOCAINE
  7. TRAMADOL. [Concomitant]
     Active Substance: TRAMADOL
  8. DEXAMETHASONE. [Concomitant]
     Active Substance: DEXAMETHASONE
  9. CYANOCOBALAMIN. [Concomitant]
     Active Substance: CYANOCOBALAMIN

REACTIONS (1)
  - Death [None]
